FAERS Safety Report 19458986 (Version 1)
Quarter: 2021Q2

REPORT INFORMATION
  Report Type: Spontaneous
  Country: US (occurrence: US)
  Receive Date: 20210624
  Receipt Date: 20210624
  Transmission Date: 20210717
  Serious: No
  Sender: FDA-Public Use
  Company Number: US-BAYER-2021-163798

PATIENT
  Age: 85 Year
  Sex: Male

DRUGS (3)
  1. CLARITIN [Suspect]
     Active Substance: LORATADINE
     Indication: OROPHARYNGEAL DISCOMFORT
  2. CLARITIN [Suspect]
     Active Substance: LORATADINE
     Indication: ORAL DISCOMFORT
     Dosage: 1 DF, QD
     Route: 048
     Dates: end: 20210623
  3. VITAMIN D [VITAMIN D NOS] [Concomitant]
     Active Substance: VITAMIN D NOS

REACTIONS (2)
  - Product use in unapproved indication [Unknown]
  - Therapeutic response unexpected [Unknown]
